FAERS Safety Report 7741304-4 (Version None)
Quarter: 2011Q3

REPORT INFORMATION
  Report Type: 
  Country: None (occurrence: None)
  Receive Date: 20110909
  Receipt Date: 20110828
  Transmission Date: 20111222
  Serious: Yes (Hospitalization, Other)
  Sender: FDA-Public Use
  Company Number: US-ELI_LILLY_AND_COMPANY-US201005000617

PATIENT
  Sex: Male

DRUGS (15)
  1. HUMALOG [Suspect]
     Dosage: 20 U, EACH EVENING
     Dates: start: 19950101
  2. HUMALOG [Suspect]
     Dosage: 20 U, EACH EVENING
     Dates: start: 19950101
  3. HUMALOG MIX 75/25 [Suspect]
     Dosage: 20 U, 2/D
     Dates: start: 19900101
  4. HUMALOG MIX 75/25 [Suspect]
     Dosage: 20 U, 2/D
     Dates: start: 19900101
  5. HUMALOG MIX 75/25 [Suspect]
     Dosage: 25 U, OTHER
     Dates: start: 20100503, end: 20100503
  6. HUMALOG MIX 75/25 [Suspect]
     Dosage: 20 U, BID
     Dates: start: 19900101
  7. HUMALOG [Suspect]
     Dosage: 17 U, EACH EVENING
     Dates: start: 19950101
  8. HUMALOG MIX 75/25 [Suspect]
     Dosage: 2 U, OTHER
     Dates: start: 20100505, end: 20100505
  9. HUMALOG MIX 75/25 [Suspect]
     Indication: TYPE 2 DIABETES MELLITUS
     Dosage: 20 U, 2/D
     Dates: start: 19900101
  10. HUMALOG MIX 75/25 [Suspect]
     Dosage: 20 U, 2/D
     Dates: start: 19900101
  11. HUMALOG [Suspect]
     Dosage: UNK, AS NEEDED
     Dates: start: 19950101
  12. HUMALOG [Suspect]
     Indication: TYPE 2 DIABETES MELLITUS
     Dosage: UNK, AS NEEDED
     Dates: start: 19950101
  13. HUMALOG [Suspect]
     Dosage: 17 U, EACH EVENING
     Dates: start: 19950101
  14. HUMALOG [Suspect]
     Dosage: UNK, PRN
     Dates: start: 19950101
  15. TRILEPTAL [Concomitant]
     Indication: NEUROPATHY PERIPHERAL

REACTIONS (22)
  - LABILE HYPERTENSION [None]
  - CEREBROVASCULAR ACCIDENT [None]
  - BLOOD GLUCOSE INCREASED [None]
  - HEPATOBILIARY SCAN ABNORMAL [None]
  - ABASIA [None]
  - AUTONOMIC NERVOUS SYSTEM IMBALANCE [None]
  - AMYOTROPHIC LATERAL SCLEROSIS [None]
  - INCORRECT DOSE ADMINISTERED [None]
  - GLYCOSYLATED HAEMOGLOBIN INCREASED [None]
  - CORONARY ARTERY DISEASE [None]
  - BLOOD GLUCOSE DECREASED [None]
  - DRUG DOSE OMISSION [None]
  - MYASTHENIA GRAVIS [None]
  - SICK SINUS SYNDROME [None]
  - DIABETIC NEUROPATHY [None]
  - TRANSIENT ISCHAEMIC ATTACK [None]
  - PARKINSON'S DISEASE [None]
  - DIVERTICULITIS [None]
  - HYPOAESTHESIA [None]
  - INGUINAL HERNIA [None]
  - DRUG INEFFECTIVE [None]
  - APHASIA [None]
